FAERS Safety Report 8299812-6 (Version None)
Quarter: 2012Q2

REPORT INFORMATION
  Report Type: 
  Country: None (occurrence: None)
  Receive Date: 20120419
  Receipt Date: 20120419
  Transmission Date: 20120825
  Serious: Yes (Other)
  Sender: FDA-Public Use
  Company Number: None

PATIENT
  Age: 43 Year
  Sex: Female
  Weight: 57.152 kg

DRUGS (1)
  1. PLAQUENIL [Suspect]

REACTIONS (3)
  - FLATULENCE [None]
  - SOMNOLENCE [None]
  - ABDOMINAL PAIN UPPER [None]
